FAERS Safety Report 13541949 (Version 1)
Quarter: 2017Q2

REPORT INFORMATION
  Report Type: Spontaneous
  Country: JP (occurrence: JP)
  Receive Date: 20170512
  Receipt Date: 20170512
  Transmission Date: 20170830
  Serious: Yes (Other)
  Sender: FDA-Public Use
  Company Number: JP-PFIZER INC-2017205936

PATIENT

DRUGS (2)
  1. 5-FU [Suspect]
     Active Substance: FLUOROURACIL
     Indication: GASTRIC CANCER
  2. METHOTREXATE. [Suspect]
     Active Substance: METHOTREXATE
     Indication: GASTRIC CANCER
     Dosage: UNK
     Dates: start: 20170509

REACTIONS (1)
  - Ascites [Unknown]
